FAERS Safety Report 14536561 (Version 1)
Quarter: 2018Q1

REPORT INFORMATION
  Report Type: Spontaneous
  Country: US (occurrence: US)
  Receive Date: 20180215
  Receipt Date: 20180215
  Transmission Date: 20180509
  Serious: Yes (Hospitalization)
  Sender: FDA-Public Use
  Company Number: None

PATIENT
  Age: 51 Year
  Sex: Female
  Weight: 53.7 kg

DRUGS (4)
  1. NORTREL [Concomitant]
     Active Substance: ETHINYL ESTRADIOL\NORETHINDRONE
  2. AMLODIPINE [Concomitant]
     Active Substance: AMLODIPINE BESYLATE
  3. TAPAZOLE [Concomitant]
     Active Substance: METHIMAZOLE
  4. BENAZEPRIL [Suspect]
     Active Substance: BENAZEPRIL HYDROCHLORIDE
     Indication: ESSENTIAL HYPERTENSION
     Dosage: DATE USE CHRONIC
     Route: 048

REACTIONS (3)
  - Lip swelling [None]
  - Angioedema [None]
  - Therapy cessation [None]

NARRATIVE: CASE EVENT DATE: 20160630
